FAERS Safety Report 5467117-4 (Version None)
Quarter: 2007Q3

REPORT INFORMATION
  Report Type: 
  Country: None (occurrence: None)
  Receive Date: 20070921
  Receipt Date: 20070921
  Transmission Date: 20080115
  Serious: Yes (Other)
  Sender: FDA-Public Use
  Company Number: None

PATIENT
  Age: 57 Year
  Sex: Male
  Weight: 83.9154 kg

DRUGS (1)
  1. KEPPRA [Suspect]
     Indication: EPILEPSY
     Dosage: 1125 MG 4X DAY PO
     Route: 048
     Dates: start: 20060115, end: 20070920

REACTIONS (2)
  - CONVULSION [None]
  - PARTIAL SEIZURES [None]
